FAERS Safety Report 6555647-3 (Version None)
Quarter: 2010Q1

REPORT INFORMATION
  Report Type: 
  Country: None (occurrence: None)
  Receive Date: 20100128
  Receipt Date: 20100114
  Transmission Date: 20100710
  Serious: Yes (Other)
  Sender: FDA-Public Use
  Company Number: PHEH2008US06170

PATIENT
  Sex: Female

DRUGS (10)
  1. ESTRADERM [Suspect]
     Indication: HORMONE REPLACEMENT THERAPY
     Dosage: 0.5 MG, UNK
     Dates: start: 19910101, end: 20020101
  2. VIVELLE [Suspect]
     Indication: HORMONE REPLACEMENT THERAPY
     Dosage: 0.05 MG, UNK
     Dates: start: 19910101, end: 20020101
  3. PREMARIN [Suspect]
     Indication: HORMONE REPLACEMENT THERAPY
     Dosage: UNK
     Dates: start: 19910101, end: 20020101
  4. PROVERA [Suspect]
     Indication: HORMONE REPLACEMENT THERAPY
     Dosage: 2.5 MG, UNK
     Dates: start: 19910101, end: 20020101
  5. CYCRIN [Suspect]
     Indication: HORMONE REPLACEMENT THERAPY
     Dosage: 2.5 MG, UNK
     Dates: start: 19910101, end: 20020101
  6. MEDROXYPROGESTERONE [Suspect]
     Indication: HORMONE REPLACEMENT THERAPY
     Dosage: 10 MG, UNK
     Dates: start: 19910101, end: 20020101
  7. HYDROCHLOROTHIAZIDE [Concomitant]
  8. ASPIRIN [Concomitant]
     Dosage: 81MG QD
     Route: 048
  9. ATENOLOL [Concomitant]
     Dosage: 25MG QD
     Route: 048
  10. GLUCOSAMINE [Concomitant]

REACTIONS (26)
  - ASTHENIA [None]
  - BREAST CANCER [None]
  - BREAST LUMP REMOVAL [None]
  - DENTAL CARE [None]
  - DERMAL CYST [None]
  - DIABETES MELLITUS [None]
  - EAR PAIN [None]
  - EMOTIONAL DISTRESS [None]
  - ENDOMETRIAL HYPERPLASIA [None]
  - FALL [None]
  - GINGIVAL SWELLING [None]
  - HOT FLUSH [None]
  - HYPERTENSION [None]
  - LYMPHADENECTOMY [None]
  - LYMPHOEDEMA [None]
  - OSTEOPENIA [None]
  - PAIN [None]
  - PAIN IN EXTREMITY [None]
  - PAIN IN JAW [None]
  - PAROTID GLAND ENLARGEMENT [None]
  - POSTMENOPAUSAL HAEMORRHAGE [None]
  - RADICAL MASTECTOMY [None]
  - RADIOTHERAPY [None]
  - SEBORRHOEIC KERATOSIS [None]
  - SKIN PAPILLOMA [None]
  - SWELLING FACE [None]
